FAERS Safety Report 17482784 (Version 1)
Quarter: 2020Q1

REPORT INFORMATION
  Report Type: Spontaneous
  Country: CN (occurrence: CN)
  Receive Date: 20200302
  Receipt Date: 20200302
  Transmission Date: 20200409
  Serious: Yes (Other)
  Sender: FDA-Public Use
  Company Number: CN-GLAXOSMITHKLINE-CN2020032189

PATIENT
  Sex: Male

DRUGS (3)
  1. VOLTAREN EMULGEL [Suspect]
     Active Substance: DICLOFENAC DIETHYLAMINE
     Indication: ANAL ULCER
     Dosage: UNK, 20 G
  2. VOLTAREN EMULGEL [Suspect]
     Active Substance: DICLOFENAC DIETHYLAMINE
     Indication: ANAL ECZEMA
  3. BACTROBAN [Suspect]
     Active Substance: MUPIROCIN\MUPIROCIN CALCIUM
     Indication: PRODUCT USED FOR UNKNOWN INDICATION
     Dosage: UNK, BID

REACTIONS (5)
  - Anal ulcer [Recovered/Resolved]
  - Drug ineffective for unapproved indication [Unknown]
  - Condition aggravated [Recovered/Resolved]
  - Pain [Unknown]
  - Inflammation [Unknown]
